FAERS Safety Report 6198369-3 (Version None)
Quarter: 2009Q2

REPORT INFORMATION
  Report Type: 
  Country: None (occurrence: None)
  Receive Date: 20090521
  Receipt Date: 20090518
  Transmission Date: 20091009
  Serious: Yes (Hospitalization, Other)
  Sender: FDA-Public Use
  Company Number: US-ROXANE LABORATORIES, INC.-2009-RO-00512RO

PATIENT
  Age: 49 Year
  Sex: Male

DRUGS (4)
  1. COCAINE [Suspect]
  2. LEVOFLOXACIN [Suspect]
     Indication: CELLULITIS
     Route: 042
  3. CLINDAMYCIN HCL [Suspect]
     Indication: CELLULITIS
     Route: 042
  4. VANCOMYCIN HCL [Concomitant]
     Indication: STAPHYLOCOCCAL INFECTION
     Route: 042

REACTIONS (5)
  - CELLULITIS [None]
  - DRUG ABUSE [None]
  - FIBROSIS [None]
  - OSTEONECROSIS [None]
  - STAPHYLOCOCCAL INFECTION [None]
